FAERS Safety Report 16934377 (Version 1)
Quarter: 2019Q4

REPORT INFORMATION
  Report Type: Spontaneous
  Country: US (occurrence: US)
  Receive Date: 20191018
  Receipt Date: 20191018
  Transmission Date: 20200122
  Serious: Yes (Other)
  Sender: FDA-Public Use
  Company Number: US-ELI_LILLY_AND_COMPANY-US201910006822

PATIENT
  Sex: Male

DRUGS (16)
  1. TAMSULOSIN HCL [Concomitant]
     Active Substance: TAMSULOSIN HYDROCHLORIDE
     Indication: BENIGN PROSTATIC HYPERPLASIA
  2. ATORVASTATIN [Concomitant]
     Active Substance: ATORVASTATIN
     Indication: CARDIAC DISORDER
     Dosage: UNK
  3. RAPAFLO [Concomitant]
     Active Substance: SILODOSIN
     Indication: BENIGN PROSTATIC HYPERPLASIA
  4. LISINOPRIL. [Concomitant]
     Active Substance: LISINOPRIL
     Indication: BLOOD PRESSURE MEASUREMENT
     Dosage: UNK
  5. VIAGRA [Suspect]
     Active Substance: SILDENAFIL CITRATE
     Dosage: 100 MG, UNKNOWN(SPILT IN HALF OR TAKEN IN QUARTERS, 1-2 PER WEEK)
     Route: 065
     Dates: start: 20140804, end: 201501
  6. FLOMAX [MORNIFLUMATE] [Concomitant]
     Active Substance: MORNIFLUMATE
     Indication: BENIGN PROSTATIC HYPERPLASIA
  7. TAMSULOSIN HCL [Concomitant]
     Active Substance: TAMSULOSIN HYDROCHLORIDE
     Indication: NOCTURIA
  8. ECOTRIN [Concomitant]
     Active Substance: ASPIRIN
     Indication: CARDIAC DISORDER
     Dosage: UNK
  9. FLOMAX [MORNIFLUMATE] [Concomitant]
     Active Substance: MORNIFLUMATE
     Indication: NOCTURIA
     Dosage: 0.4 MG, DAILY
     Dates: start: 20050330, end: 201201
  10. ELIQUIS [Concomitant]
     Active Substance: APIXABAN
     Indication: CARDIAC FLUTTER
     Dosage: UNK
  11. MULTAQ [Concomitant]
     Active Substance: DRONEDARONE
     Indication: CARDIAC FLUTTER
     Dosage: UNK
  12. VITAMIN B COMPLEX [Concomitant]
     Active Substance: CYANOCOBALAMIN\DEXPANTHENOL\NIACINAMIDE\PYRIDOXINE HYDROCHLORIDE\RIBOFLAVIN 5^-PHOSPHATE SODIUM\THIAMINE HYDROCHLORIDE\VITAMIN B COMPLEX
     Indication: SUPPLEMENTATION THERAPY
  13. CIALIS [Suspect]
     Active Substance: TADALAFIL
     Indication: ERECTILE DYSFUNCTION
     Dosage: UNK UNK, UNKNOWN
     Route: 065
  14. VIAGRA [Suspect]
     Active Substance: SILDENAFIL CITRATE
     Indication: ERECTILE DYSFUNCTION
     Dosage: 100 MG, PRN
     Route: 065
     Dates: start: 20020628, end: 201406
  15. RAPAFLO [Concomitant]
     Active Substance: SILODOSIN
     Indication: NOCTURIA
     Dosage: 8 MG, DAILY
     Dates: start: 20110907, end: 201302
  16. METOPROLOL. [Concomitant]
     Active Substance: METOPROLOL
     Indication: BLOOD PRESSURE MEASUREMENT
     Dosage: UNK

REACTIONS (7)
  - Malignant melanoma [Unknown]
  - Heart rate irregular [Recovering/Resolving]
  - Arteriosclerosis [Recovering/Resolving]
  - Back pain [Recovering/Resolving]
  - Hernia [Recovered/Resolved]
  - Actinic keratosis [Unknown]
  - Nephrolithiasis [Recovered/Resolved]

NARRATIVE: CASE EVENT DATE: 2004
